FAERS Safety Report 18445850 (Version 1)
Quarter: 2020Q4

REPORT INFORMATION
  Report Type: Spontaneous
  Country: CA (occurrence: CA)
  Receive Date: 20201030
  Receipt Date: 20201030
  Transmission Date: 20210114
  Serious: Yes (Other)
  Sender: FDA-Public Use
  Company Number: None

PATIENT
  Age: 20 Year
  Sex: Female
  Weight: 66.15 kg

DRUGS (5)
  1. VENTOLIN [Concomitant]
     Active Substance: ALBUTEROL SULFATE
  2. GLUCAGON. [Concomitant]
     Active Substance: GLUCAGON
  3. GLUCAGON FOR INJECTION [Suspect]
     Active Substance: GLUCAGON
     Indication: DIABETES MELLITUS
     Dosage: ?          QUANTITY:1 INJECTION(S);?
     Route: 030
  4. KEPPRA [Concomitant]
     Active Substance: LEVETIRACETAM
  5. SYMBICORT [Concomitant]
     Active Substance: BUDESONIDE\FORMOTEROL FUMARATE DIHYDRATE

REACTIONS (1)
  - Pruritus [None]

NARRATIVE: CASE EVENT DATE: 20201030
